FAERS Safety Report 21104693 (Version 3)
Quarter: 2023Q1

REPORT INFORMATION
  Report Type: Spontaneous
  Country: IN (occurrence: IN)
  Receive Date: 20220720
  Receipt Date: 20230222
  Transmission Date: 20230418
  Serious: Yes (Hospitalization, Other)
  Sender: FDA-Public Use
  Company Number: IN-PFIZER INC-202101580226

PATIENT
  Age: 51 Year
  Sex: Female
  Weight: 67.8 kg

DRUGS (11)
  1. CRIZOTINIB [Suspect]
     Active Substance: CRIZOTINIB
     Indication: Adenocarcinoma metastatic
     Dosage: 250 MG, 2X/DAY
     Route: 048
  2. CRIZOTINIB [Suspect]
     Active Substance: CRIZOTINIB
     Dosage: 200 MG, 2X/DAY
  3. RANITIDINE [Concomitant]
     Active Substance: RANITIDINE
     Dosage: 300 MG, 1X/DAY
  4. TORSEMIDE [Concomitant]
     Active Substance: TORSEMIDE
     Dosage: UNK
  5. MEGASTY [Concomitant]
     Dosage: 160 MG, 2X/DAY
  6. METOCLOPRAMIDE HYDROCHLORIDE [Concomitant]
     Active Substance: METOCLOPRAMIDE HYDROCHLORIDE
     Indication: Vomiting
     Dosage: 10 MG, AS NEEDED
  7. IMODIUM [Concomitant]
     Active Substance: LOPERAMIDE HYDROCHLORIDE
     Indication: Diarrhoea
     Dosage: 2 DF IF DIARRHORA MORE THAN 4 TIMES IN 24 HOURS
  8. DUOLIN [IPRATROPIUM BROMIDE;SALBUTAMOL] [Concomitant]
     Dosage: INHALER 2 PUFF
  9. PYREGESIC [Concomitant]
     Indication: Pyrexia
     Dosage: 1 G, AS NEEDED MAX 3/DAY
  10. PYREGESIC [Concomitant]
     Indication: Pain
  11. TYDOL [PARACETAMOL] [Concomitant]
     Indication: Pain
     Dosage: 50 MG, AS NEEDED  (FOR PAIN NOT CONTROLLED BY PCM) MAX 4/DAY

REACTIONS (12)
  - Bradycardia [Unknown]
  - Abdominal distension [Unknown]
  - Dyspnoea exertional [Unknown]
  - Pyrexia [Unknown]
  - Thrombosis [Unknown]
  - Pneumonia [Unknown]
  - Pyelonephritis acute [Unknown]
  - Cardiomegaly [Unknown]
  - Swelling face [Unknown]
  - Chest discomfort [Unknown]
  - Nodule [Unknown]
  - Groin pain [Unknown]

NARRATIVE: CASE EVENT DATE: 20211208
